FAERS Safety Report 20609278 (Version 1)
Quarter: 2022Q1

REPORT INFORMATION
  Report Type: Spontaneous
  Country: JP (occurrence: JP)
  Receive Date: 20220317
  Receipt Date: 20220317
  Transmission Date: 20220424
  Serious: Yes (Death, Other)
  Sender: FDA-Public Use
  Company Number: JP-JAZZ-2022-JP-004840

PATIENT
  Age: 20 Year
  Sex: Male
  Weight: 85.3 kg

DRUGS (1)
  1. DEFITELIO [Suspect]
     Active Substance: DEFIBROTIDE SODIUM
     Indication: Venoocclusive liver disease
     Dosage: 25 MILLIGRAM/KILOGRAM, QD (25 MG/KG/24 HOURS)
     Route: 042
     Dates: start: 20211228, end: 20220102

REACTIONS (1)
  - Human herpesvirus 6 encephalitis [Fatal]
